FAERS Safety Report 6235623-0 (Version None)
Quarter: 2009Q2

REPORT INFORMATION
  Report Type: 
  Country: None (occurrence: None)
  Receive Date: 20090616
  Receipt Date: 20090602
  Transmission Date: 20091009
  Serious: Yes (Other)
  Sender: FDA-Public Use
  Company Number: 2009S1009826

PATIENT
  Age: 77 Year
  Sex: Male

DRUGS (5)
  1. ENALAPRIL MALEATE [Suspect]
     Indication: HYPERTENSION
     Dosage: 20 MG; TWICE A DAY
  2. HYDROCHLOROTHIAZIDE [Suspect]
     Indication: HYPERTENSION
     Dosage: 1 DF; DAILY
  3. VERAPAMIL [Concomitant]
  4. SIMVASTAD (SIMVASTATIN) [Concomitant]
  5. PHENPROCOUMON (PHENPROCOUMON) [Concomitant]

REACTIONS (1)
  - GYNAECOMASTIA [None]
